FAERS Safety Report 12403956 (Version 1)
Quarter: 2016Q2

REPORT INFORMATION
  Report Type: Spontaneous
  Country: US (occurrence: US)
  Receive Date: 20160525
  Receipt Date: 20160525
  Transmission Date: 20160815
  Serious: No
  Sender: FDA-Public Use
  Company Number: US-TEVA-658587ACC

PATIENT
  Age: 24 Year
  Sex: Female
  Weight: 67.19 kg

DRUGS (4)
  1. METHYLPHENIDATE ER [Concomitant]
     Active Substance: METHYLPHENIDATE
     Indication: ATTENTION DEFICIT/HYPERACTIVITY DISORDER
  2. CLONAZEPAM. [Concomitant]
     Active Substance: CLONAZEPAM
  3. BUPROPION SR [Concomitant]
     Active Substance: BUPROPION
     Indication: DEPRESSION
  4. PARAGARD T 380A [Suspect]
     Active Substance: COPPER
     Indication: CONTRACEPTION
     Dates: start: 20151106, end: 20160414

REACTIONS (1)
  - Device expulsion [Recovered/Resolved]

NARRATIVE: CASE EVENT DATE: 20160414
